FAERS Safety Report 9557273 (Version 1)
Quarter: 2013Q3

REPORT INFORMATION
  Report Type: Spontaneous
  Country: US (occurrence: None)
  Receive Date: 20130724
  Receipt Date: 20130724
  Transmission Date: 20140515
  Serious: Yes (Other)
  Sender: FDA-Public Use
  Company Number: PHEH2013US007897

PATIENT
  Age: 21 Year
  Sex: Male
  Weight: 75 kg

DRUGS (1)
  1. GILENYA (FINGOLIMOD) CAPSULE [Suspect]
     Indication: MULTIPLE SCLEROSIS
     Route: 048
     Dates: start: 20111212, end: 20130408

REACTIONS (3)
  - Neutropenia [None]
  - White blood cell count decreased [None]
  - Lymphocyte count decreased [None]
